FAERS Safety Report 14869801 (Version 1)
Quarter: 2018Q2

REPORT INFORMATION
  Report Type: Spontaneous
  Country: US (occurrence: US)
  Receive Date: 20180509
  Receipt Date: 20180509
  Transmission Date: 20180711
  Serious: No
  Sender: FDA-Public Use
  Company Number: US-BEH-2018090446

PATIENT
  Sex: Female
  Weight: 58.5 kg

DRUGS (35)
  1. PROPRANOLOL [Concomitant]
     Active Substance: PROPRANOLOL HYDROCHLORIDE
  2. FLORANEX [Concomitant]
     Active Substance: LACTOBACILLUS ACIDOPHILUS\LACTOBACILLUS DELBRUECKII SUBSP. BULGARICUS
  3. DOXYCYCLINE. [Concomitant]
     Active Substance: DOXYCYCLINE
  4. DHEA [Concomitant]
     Active Substance: PRASTERONE
  5. BACLOFEN. [Concomitant]
     Active Substance: BACLOFEN
  6. LOVENOX [Concomitant]
     Active Substance: ENOXAPARIN SODIUM
  7. NATURE-THROID [Concomitant]
     Active Substance: THYROID, PORCINE
  8. BUDESONIDE. [Concomitant]
     Active Substance: BUDESONIDE
  9. PERCOCET                           /00446701/ [Concomitant]
     Active Substance: ACETAMINOPHEN\OXYCODONE HYDROCHLORIDE\OXYCODONE TEREPHTHALATE
  10. HIZENTRA [Suspect]
     Active Substance: HUMAN IMMUNOGLOBULIN G
     Dosage: UNK
     Route: 058
  11. POTASSIUM [Concomitant]
     Active Substance: POTASSIUM
  12. MAGNESIUM [Concomitant]
     Active Substance: MAGNESIUM
  13. ESTRADIOL. [Concomitant]
     Active Substance: ESTRADIOL
  14. METHOCARBAMOL. [Concomitant]
     Active Substance: METHOCARBAMOL
  15. TRAMADOL. [Concomitant]
     Active Substance: TRAMADOL
  16. VITAMIN D                          /00107901/ [Concomitant]
     Active Substance: ERGOCALCIFEROL
  17. MUPIROCIN. [Concomitant]
     Active Substance: MUPIROCIN
  18. HIZENTRA [Suspect]
     Active Substance: HUMAN IMMUNOGLOBULIN G
     Indication: IMMUNODEFICIENCY
     Dosage: 7 G,  AS DIRECTED
     Route: 058
     Dates: start: 20141004
  19. CELEBREX [Concomitant]
     Active Substance: CELECOXIB
  20. AMBIEN [Concomitant]
     Active Substance: ZOLPIDEM TARTRATE
  21. MULTIVITAMINS [Concomitant]
     Active Substance: VITAMINS
  22. HIZENTRA [Suspect]
     Active Substance: HUMAN IMMUNOGLOBULIN G
     Dosage: UNK
     Route: 058
  23. NALTREXONE [Concomitant]
     Active Substance: NALTREXONE
  24. DICYCLOMINE                        /00068601/ [Concomitant]
     Active Substance: DICYCLOMINE HYDROCHLORIDE
  25. GLUTATHIONE [Concomitant]
     Active Substance: GLUTATHIONE
  26. SELENIUM [Concomitant]
     Active Substance: SELENIUM
  27. FLORASTOR [Concomitant]
     Active Substance: SACCHAROMYCES CEREVISIAE
  28. FLUDROCORTISONE [Concomitant]
     Active Substance: FLUDROCORTISONE
  29. TPN                                /07823201/ [Concomitant]
  30. ZOFRAN [Concomitant]
     Active Substance: ONDANSETRON HYDROCHLORIDE
  31. IMODIUM A-D [Concomitant]
     Active Substance: LOPERAMIDE HYDROCHLORIDE
  32. SKELAXIN [Concomitant]
     Active Substance: METAXALONE
  33. PROMETHAZINE [Concomitant]
     Active Substance: PROMETHAZINE\PROMETHAZINE HYDROCHLORIDE
  34. ALPHA LIPOIC ACID [Concomitant]
     Active Substance: .ALPHA.-LIPOIC ACID
  35. MOUTHWASHGUM [Concomitant]

REACTIONS (3)
  - Myalgia [Unknown]
  - Muscular weakness [Unknown]
  - Injection site erythema [Unknown]
